FAERS Safety Report 20428549 (Version 1)
Quarter: 2022Q1

REPORT INFORMATION
  Report Type: Report from Study
  Country: US (occurrence: US)
  Receive Date: 20220204
  Receipt Date: 20220204
  Transmission Date: 20220423
  Serious: No
  Sender: FDA-Public Use
  Company Number: US-EXELIXIS-CABO-21045511

PATIENT
  Sex: Female
  Weight: 106.03 kg

DRUGS (3)
  1. CABOMETYX [Suspect]
     Active Substance: CABOZANTINIB S-MALATE
     Indication: Renal cancer
     Dosage: 60 MG, QD
     Route: 048
     Dates: start: 20211026
  2. CABOMETYX [Suspect]
     Active Substance: CABOZANTINIB S-MALATE
     Dosage: 60 MG, QD
     Route: 048
     Dates: end: 20211230
  3. CABOMETYX [Suspect]
     Active Substance: CABOZANTINIB S-MALATE
     Dosage: 40 MG, QD
     Route: 048

REACTIONS (19)
  - Glossitis [Unknown]
  - Skin exfoliation [Recovered/Resolved]
  - Chapped lips [Recovered/Resolved]
  - Cognitive disorder [Recovered/Resolved]
  - Skin discolouration [Unknown]
  - Skin papilloma [Unknown]
  - Blister [Unknown]
  - Peripheral swelling [Recovered/Resolved]
  - Glossodynia [Recovered/Resolved]
  - Back pain [Unknown]
  - Nausea [Unknown]
  - Hepatic enzyme increased [Recovered/Resolved]
  - Decreased appetite [Unknown]
  - Abdominal pain upper [Unknown]
  - Diarrhoea [Unknown]
  - Dry skin [Unknown]
  - Pain in extremity [Unknown]
  - Fatigue [Unknown]
  - Malignant neoplasm progression [Unknown]
